FAERS Safety Report 10231242 (Version 3)
Quarter: 2014Q3

REPORT INFORMATION
  Report Type: Report from Study
  Country: KR (occurrence: KR)
  Receive Date: 20140611
  Receipt Date: 20140721
  Transmission Date: 20150326
  Serious: Yes (Hospitalization, Other)
  Sender: FDA-Public Use
  Company Number: KR-ABBVIE-13P-090-1108971-00

PATIENT
  Age: 22 Year
  Sex: Male
  Weight: 46.7 kg

DRUGS (7)
  1. HUMIRA [Suspect]
     Active Substance: ADALIMUMAB
     Route: 058
     Dates: start: 20130530, end: 20130530
  2. MESALAZINE [Concomitant]
     Active Substance: MESALAMINE
     Indication: CROHN^S DISEASE
     Route: 048
     Dates: end: 20130530
  3. HUMIRA [Suspect]
     Active Substance: ADALIMUMAB
     Indication: CROHN^S DISEASE
     Dosage: ONCE FOR INDUCTION THERAPY
     Route: 058
     Dates: start: 20130502, end: 20130503
  4. AZATHIOPRINE. [Concomitant]
     Active Substance: AZATHIOPRINE
     Indication: CROHN^S DISEASE
     Route: 048
     Dates: start: 20121213, end: 20130530
  5. MIDAZOLAM [Concomitant]
     Active Substance: MIDAZOLAM\MIDAZOLAM HYDROCHLORIDE
     Indication: COLONOSCOPY
  6. DEMEROL [Concomitant]
     Active Substance: MEPERIDINE HYDROCHLORIDE
     Indication: PREMEDICATION
  7. HUMIRA [Suspect]
     Active Substance: ADALIMUMAB
     Dosage: ONCE FOR INDUCTION THERAPY
     Route: 058
     Dates: start: 20130516, end: 20130516

REACTIONS (6)
  - Large intestinal stenosis [Unknown]
  - Abdominal pain [Recovering/Resolving]
  - Abscess intestinal [Unknown]
  - Abdominal adhesions [Unknown]
  - Large intestinal ulcer [Unknown]
  - Crohn^s disease [Unknown]

NARRATIVE: CASE EVENT DATE: 20130607
